FAERS Safety Report 9205379 (Version 3)
Quarter: 2013Q3

REPORT INFORMATION
  Report Type: Report from Study
  Country: SE (occurrence: SE)
  Receive Date: 20130402
  Receipt Date: 20130916
  Transmission Date: 20140515
  Serious: Yes (Life-Threatening)
  Sender: FDA-Public Use
  Company Number: SE-AMGEN-SWECT2013021935

PATIENT
  Age: 82 Year
  Sex: Female

DRUGS (3)
  1. ETANERCEPT [Suspect]
     Indication: RHEUMATOID ARTHRITIS
     Dosage: 50 MG, QWK
     Route: 058
     Dates: start: 20120514, end: 20130313
  2. METHOTREXATE [Concomitant]
     Dosage: 7.5 MG, UNKNOWN FREQUENCY
     Dates: start: 20121002
  3. PREDNISOLONE [Concomitant]
     Dosage: 5 MG, UNKNOWN FREQUENCY
     Dates: start: 20110908

REACTIONS (2)
  - Rectal cancer [Unknown]
  - Gastrointestinal carcinoma [Unknown]
